FAERS Safety Report 12409380 (Version 2)
Quarter: 2016Q4

REPORT INFORMATION
  Report Type: Spontaneous
  Country: JP (occurrence: JP)
  Receive Date: 20160526
  Receipt Date: 20161005
  Transmission Date: 20170207
  Serious: Yes (Other)
  Sender: FDA-Public Use
  Company Number: JP-009507513-1602JPN004959

PATIENT
  Age: 72 Year
  Sex: Female

DRUGS (6)
  1. REBETOL [Suspect]
     Active Substance: RIBAVIRIN
     Indication: CHRONIC HEPATITIS
     Dosage: 600 MG PER DAY (3 CAPSULES PER DAY)
     Route: 048
     Dates: start: 20160113, end: 20160204
  2. REBETOL [Suspect]
     Active Substance: RIBAVIRIN
     Dosage: 200 MG, QD (1 CAPSULE, PER DAY)
     Route: 048
     Dates: start: 20160217, end: 2016
  3. WARKMIN [Concomitant]
     Active Substance: ALFACALCIDOL
     Dosage: 1 MICROGRAM, QD, (2 CAPSULES PER DAY).
     Route: 048
  4. SOVALDI [Suspect]
     Active Substance: SOFOSBUVIR
     Dosage: UNK
     Route: 048
     Dates: start: 2016, end: 2016
  5. SOVALDI [Suspect]
     Active Substance: SOFOSBUVIR
     Indication: CHRONIC HEPATITIS C
     Dosage: 400 MG, QD
     Route: 048
     Dates: start: 20160113, end: 20160204
  6. ASPARA CA [Concomitant]
     Dosage: 400 MG, QD, (2 TABLETS PER DAY).
     Route: 048

REACTIONS (1)
  - Renal impairment [Recovered/Resolved]

NARRATIVE: CASE EVENT DATE: 20160127
